FAERS Safety Report 9757307 (Version 1)
Quarter: 2013Q4

REPORT INFORMATION
  Report Type: Spontaneous
  Country: TW (occurrence: TW)
  Receive Date: 20131214
  Receipt Date: 20131214
  Transmission Date: 20140711
  Serious: Yes (Death, Hospitalization)
  Sender: FDA-Public Use
  Company Number: 2013SP008505

PATIENT
  Age: 59 Year
  Sex: Female

DRUGS (25)
  1. VANCOMYCIN [Suspect]
     Indication: INFECTION
     Route: 042
     Dates: start: 20131101
  2. VANCOMYCIN [Suspect]
     Indication: INFECTION
     Dates: start: 20131102, end: 20131108
  3. LEVOFLOXACIN [Suspect]
     Indication: INFECTION
     Route: 041
     Dates: start: 20131101
  4. LEVOFLOXACIN [Suspect]
     Indication: INFECTION
     Route: 048
     Dates: start: 20131109
  5. ALLEGRA [Concomitant]
     Dates: start: 20131102
  6. ALLEGRA [Concomitant]
     Dates: start: 20131115
  7. BOKEY [Concomitant]
     Dates: start: 20131107
  8. CHLORPHENIRAMINE MALEATE [Concomitant]
     Dates: start: 20131102
  9. CHLORPHENIRAMINE MALEATE [Concomitant]
     Dates: start: 20131115
  10. ELTROXIN [Concomitant]
     Dates: start: 20131101
  11. ESTAZOLAM [Concomitant]
     Dates: start: 20131101
  12. FOLIC ACID [Concomitant]
     Dates: start: 20131101
  13. ISOSORBIDE MONONITRATE [Concomitant]
     Dates: start: 20131101
  14. PANTOTHENIC ACID [Concomitant]
     Dates: start: 20131101
  15. PYRIDOXINE HYDROCHLORIDE [Concomitant]
     Dates: start: 20131101
  16. NICOTINIC ACID [Concomitant]
     Dates: start: 20131101
  17. THIAMINE HYDROCHLORIDE [Concomitant]
     Dates: start: 20131101
  18. RIBOFLAVINE [Concomitant]
     Dates: start: 20131101
  19. MOSAPRIDE CITRATE [Concomitant]
     Dates: start: 20131101
  20. PREDNISOLONE [Concomitant]
     Dates: start: 20131107
  21. PREDNISOLONE [Concomitant]
     Dates: start: 20131115
  22. SIMETHICONE [Concomitant]
     Dates: start: 20131102
  23. SENNOSIDE /00571901/ [Concomitant]
     Dates: start: 20131102
  24. ACETAMINOPHEN [Concomitant]
     Dates: start: 20131115
  25. PANACAL [Concomitant]
     Dates: start: 20131115

REACTIONS (7)
  - Toxic epidermal necrolysis [Fatal]
  - Rash [Not Recovered/Not Resolved]
  - Pruritus generalised [Not Recovered/Not Resolved]
  - Pyrexia [Not Recovered/Not Resolved]
  - Chills [Unknown]
  - Blister [Not Recovered/Not Resolved]
  - Multi-organ failure [Fatal]
